FAERS Safety Report 8407263-6 (Version None)
Quarter: 2012Q2

REPORT INFORMATION
  Report Type: 
  Country: None (occurrence: None)
  Receive Date: 20120604
  Receipt Date: 20120521
  Transmission Date: 20120825
  Serious: Yes (Death)
  Sender: FDA-Public Use
  Company Number: TH-ROCHE-1048659

PATIENT

DRUGS (1)
  1. ALTEPLASE [Suspect]
     Indication: ISCHAEMIC STROKE
     Dosage: 0.9 MG/KG, MAX. 90 MG, 10% AS BOLUS FOLLOWED BY 90% AS CONTINUOUS INFUSION OVER 1 H (NR)
     Route: 042

REACTIONS (2)
  - CEREBRAL INFARCTION [None]
  - BRAIN HERNIATION [None]
